FAERS Safety Report 18198778 (Version 3)
Quarter: 2020Q4

REPORT INFORMATION
  Report Type: Spontaneous
  Country: US (occurrence: US)
  Receive Date: 20200826
  Receipt Date: 20201006
  Transmission Date: 20210113
  Serious: Yes (Life-Threatening, Hospitalization)
  Sender: FDA-Public Use
  Company Number: US-TEVA-2020-US-1818243

PATIENT
  Age: 46 Year
  Sex: Male

DRUGS (14)
  1. POLYMYXIN B. [Suspect]
     Active Substance: POLYMYXIN B
     Indication: ANTIBIOTIC THERAPY
     Dosage: 2.64 MG/KG DAILY; LOADING DOSE WAS OMITTED AND POLYMIXIN B WAS INITIATED AT 1.32 MG/KG USING TOTAL B
     Route: 041
  2. CEFTAZIDIME-AVIBACTAM [Concomitant]
     Active Substance: AVIBACTAM SODIUM\CEFTAZIDIME
     Indication: ABDOMINAL ABSCESS
  3. LINEZOLID. [Concomitant]
     Active Substance: LINEZOLID
     Indication: ANTIBIOTIC THERAPY
     Route: 048
  4. METRONIDAZOLE. [Concomitant]
     Active Substance: METRONIDAZOLE
     Indication: ANTIBIOTIC THERAPY
     Route: 065
  5. CEFTAZIDIME-AVIBACTAM [Concomitant]
     Active Substance: AVIBACTAM SODIUM\CEFTAZIDIME
     Indication: ANTIBIOTIC THERAPY
     Route: 065
  6. DAPTOMYCIN. [Concomitant]
     Active Substance: DAPTOMYCIN
     Indication: ENTEROCOCCAL INFECTION
     Route: 065
  7. METRONIDAZOLE. [Concomitant]
     Active Substance: METRONIDAZOLE
     Indication: ABDOMINAL ABSCESS
     Route: 042
  8. MEROPENEM. [Concomitant]
     Active Substance: MEROPENEM
     Indication: ENTEROCOCCAL INFECTION
     Route: 065
  9. MEROPENEM. [Concomitant]
     Active Substance: MEROPENEM
     Indication: PSEUDOMONAS INFECTION
  10. DAPTOMYCIN. [Concomitant]
     Active Substance: DAPTOMYCIN
     Indication: PSEUDOMONAS INFECTION
  11. LEVOFLOXACIN. [Concomitant]
     Active Substance: LEVOFLOXACIN
     Indication: PSEUDOMONAS INFECTION
  12. POLYMYXIN B. [Suspect]
     Active Substance: POLYMYXIN B
     Indication: ABDOMINAL ABSCESS
  13. LEVOFLOXACIN. [Concomitant]
     Active Substance: LEVOFLOXACIN
     Indication: ENTEROCOCCAL INFECTION
     Route: 065
  14. BACLOFEN. [Suspect]
     Active Substance: BACLOFEN
     Indication: PRODUCT USED FOR UNKNOWN INDICATION
     Route: 065

REACTIONS (8)
  - Physical deconditioning [Recovering/Resolving]
  - Dizziness [Recovering/Resolving]
  - Asthenia [Recovering/Resolving]
  - Respiratory arrest [Recovering/Resolving]
  - Respiratory paralysis [Recovering/Resolving]
  - Pulseless electrical activity [Recovering/Resolving]
  - Toxicity to various agents [Recovering/Resolving]
  - Neurotoxicity [Unknown]
